FAERS Safety Report 19697966 (Version 1)
Quarter: 2021Q3

REPORT INFORMATION
  Report Type: Report from Study
  Country: US (occurrence: US)
  Receive Date: 20210812
  Receipt Date: 20210812
  Transmission Date: 20211014
  Serious: No
  Sender: FDA-Public Use
  Company Number: US-ACADIA PHARMACEUTICALS INC.-ACA-2021-PIM-002699

PATIENT
  Age: 62 Year
  Sex: Male

DRUGS (12)
  1. OMEPRAZOLE. [Concomitant]
     Active Substance: OMEPRAZOLE
  2. RASAGILINE. [Concomitant]
     Active Substance: RASAGILINE
  3. DONEPEZIL. [Concomitant]
     Active Substance: DONEPEZIL
  4. KETOCONAZOLE. [Concomitant]
     Active Substance: KETOCONAZOLE
  5. NUPLAZID [Suspect]
     Active Substance: PIMAVANSERIN TARTRATE
     Indication: PARKINSON^S DISEASE
     Dosage: 34 MILLIGRAM, QD
     Route: 048
     Dates: start: 20190816, end: 20210630
  6. MELOXICAM. [Concomitant]
     Active Substance: MELOXICAM
  7. RYTARY [Concomitant]
     Active Substance: CARBIDOPA\LEVODOPA
  8. CLONAZEPAM. [Concomitant]
     Active Substance: CLONAZEPAM
  9. TOLTERODINE [Concomitant]
     Active Substance: TOLTERODINE
  10. QUETIAPINE. [Concomitant]
     Active Substance: QUETIAPINE
  11. ROSUVASTATIN. [Concomitant]
     Active Substance: ROSUVASTATIN
  12. TRAZODONE [Concomitant]
     Active Substance: TRAZODONE HYDROCHLORIDE

REACTIONS (1)
  - Delusion [Not Recovered/Not Resolved]

NARRATIVE: CASE EVENT DATE: 20210630
